FAERS Safety Report 11972998 (Version 1)
Quarter: 2016Q1

REPORT INFORMATION
  Report Type: Spontaneous
  Country: TR (occurrence: TR)
  Receive Date: 20160128
  Receipt Date: 20160128
  Transmission Date: 20160526
  Serious: Yes (Death, Other)
  Sender: FDA-Public Use
  Company Number: TR-ARBOR PHARMACEUTICALS, LLC-TR-2016ARB000026

PATIENT
  Age: 32 Year
  Sex: Female

DRUGS (5)
  1. TOPIRAMATE. [Suspect]
     Active Substance: TOPIRAMATE
     Indication: EPILEPSY
     Dosage: UNK
  2. LAMOTRIGINE. [Suspect]
     Active Substance: LAMOTRIGINE
     Indication: EPILEPSY
     Dosage: UNK
  3. CLONAZEPAM. [Suspect]
     Active Substance: CLONAZEPAM
     Indication: EPILEPSY
     Dosage: UNK
  4. TOPIRAMATE. [Suspect]
     Active Substance: TOPIRAMATE
     Dosage: UNK, DOSE REDUCTION
  5. CLONAZEPAM. [Suspect]
     Active Substance: CLONAZEPAM
     Dosage: UNK, DOSE REDUCTION

REACTIONS (25)
  - Face oedema [Unknown]
  - Lung consolidation [Unknown]
  - Folate deficiency [Unknown]
  - Pericardial effusion [Unknown]
  - Cardiac failure [Not Recovered/Not Resolved]
  - Hepatic failure [Not Recovered/Not Resolved]
  - Spleen palpable [Unknown]
  - Asthenia [Unknown]
  - Splenomegaly [Unknown]
  - Rales [Unknown]
  - Cough [Unknown]
  - Drug reaction with eosinophilia and systemic symptoms [Not Recovered/Not Resolved]
  - Multiple organ dysfunction syndrome [Fatal]
  - Dyspnoea [Unknown]
  - Generalised oedema [Unknown]
  - Hepatic enzyme increased [Unknown]
  - Muscular weakness [Not Recovered/Not Resolved]
  - Respiratory failure [Not Recovered/Not Resolved]
  - Pleural effusion [Unknown]
  - Blood creatinine increased [Unknown]
  - Bronchial wall thickening [Unknown]
  - Pyrexia [Unknown]
  - Lymphadenopathy [Unknown]
  - Renal failure [Not Recovered/Not Resolved]
  - Pallor [Unknown]
